FAERS Safety Report 12393409 (Version 1)
Quarter: 2016Q2

REPORT INFORMATION
  Report Type: Spontaneous
  Country: US (occurrence: None)
  Receive Date: 20160520
  Receipt Date: 20160520
  Transmission Date: 20160815
  Serious: No
  Sender: FDA-Public Use
  Company Number: None

PATIENT
  Age: 74 Year
  Sex: Female

DRUGS (1)
  1. REPATHA [Suspect]
     Active Substance: EVOLOCUMAB
     Indication: HYPERCHOLESTEROLAEMIA
     Dosage: REPATHA 140MG/ML INJECT 140MG SQ EVERY 2 WEEKS SQ
     Route: 058
     Dates: start: 20160204

REACTIONS (4)
  - Hypersensitivity [None]
  - Burning sensation [None]
  - Oral discomfort [None]
  - Multiple sclerosis [None]

NARRATIVE: CASE EVENT DATE: 20160204
